FAERS Safety Report 4387916-X (Version None)
Quarter: 2004Q2

REPORT INFORMATION
  Report Type: 
  Country: None (occurrence: None)
  Receive Date: 20040607
  Receipt Date: 20031203
  Transmission Date: 20050107
  Serious: Yes (Death)
  Sender: FDA-Public Use
  Company Number: 353461

PATIENT
  Sex: Female

DRUGS (2)
  1. ACCUTANE [Suspect]
     Dosage: ORAL
     Route: 048
     Dates: start: 19950615, end: 19971212
  2. BLOOD PRESSURE MEDICATIONS NOS [Concomitant]

REACTIONS (1)
  - CEREBRAL HAEMORRHAGE [None]
